FAERS Safety Report 5404371-9 (Version None)
Quarter: 2007Q3

REPORT INFORMATION
  Report Type: 
  Country: None (occurrence: None)
  Receive Date: 20070802
  Receipt Date: 20070702
  Transmission Date: 20080115
  Serious: Yes (Death, Hospitalization)
  Sender: FDA-Public Use
  Company Number: US-PFIZER INC-2006099187

PATIENT
  Sex: Male
  Weight: 72.6 kg

DRUGS (2)
  1. BEXTRA [Suspect]
     Indication: BACK PAIN
  2. CELEBREX [Suspect]
     Indication: BACK PAIN

REACTIONS (1)
  - CEREBROVASCULAR ACCIDENT [None]
